FAERS Safety Report 9381729 (Version 1)
Quarter: 2013Q3

REPORT INFORMATION
  Report Type: Spontaneous
  Country: IT (occurrence: IT)
  Receive Date: 20130703
  Receipt Date: 20130703
  Transmission Date: 20140515
  Serious: Yes (Hospitalization)
  Sender: FDA-Public Use
  Company Number: IT-NOVOPROD-381631

PATIENT
  Age: 85 Year
  Sex: Male

DRUGS (8)
  1. NOVONORM [Suspect]
     Indication: DIABETES MELLITUS
     Dosage: 3 TAB, QD
     Route: 048
     Dates: start: 20130101, end: 20130505
  2. METFORAL [Suspect]
     Indication: DIABETES MELLITUS
     Dosage: 3 TAB, QD
     Route: 048
     Dates: start: 20130101, end: 20130505
  3. VALSARTAN [Concomitant]
  4. PROSTIDE                           /00726902/ [Concomitant]
     Dosage: 5 MG
  5. NORVASC [Concomitant]
     Dosage: 10 MG
  6. KANRENOL [Concomitant]
     Dosage: 25 MG
  7. PLAVIX [Concomitant]
  8. CARDIOASPIRIN [Concomitant]

REACTIONS (3)
  - Subdural haematoma [Unknown]
  - Syncope [Unknown]
  - Hypoglycaemia [Unknown]
